FAERS Safety Report 17362110 (Version 1)
Quarter: 2020Q1

REPORT INFORMATION
  Report Type: Spontaneous
  Country: GB (occurrence: GB)
  Receive Date: 20200203
  Receipt Date: 20200203
  Transmission Date: 20200409
  Serious: Yes (Other)
  Sender: FDA-Public Use
  Company Number: GB-PFIZER INC-2020042584

PATIENT
  Sex: Male

DRUGS (2)
  1. DOCETAXEL. [Suspect]
     Active Substance: DOCETAXEL
     Dosage: UNK MG/M2, CYCLIC
     Route: 042
     Dates: start: 20190517, end: 20190517
  2. DOCETAXEL. [Suspect]
     Active Substance: DOCETAXEL
     Indication: PROSTATE CANCER
     Dosage: UNK MG/M2, CYCLIC
     Route: 042
     Dates: start: 20181109, end: 20181109

REACTIONS (4)
  - Peripheral swelling [Unknown]
  - Neuropathy peripheral [Unknown]
  - Joint swelling [Unknown]
  - Fatigue [Unknown]
